FAERS Safety Report 25321300 (Version 5)
Quarter: 2025Q4

REPORT INFORMATION
  Report Type: Report from Study
  Country: US (occurrence: US)
  Receive Date: 20250515
  Receipt Date: 20251223
  Transmission Date: 20260117
  Serious: Yes (Hospitalization, Other)
  Sender: ABBVIE
  Company Number: US-ABBVIE-6163862

PATIENT
  Age: 77 Year
  Sex: Male

DRUGS (3)
  1. VENCLEXTA [Suspect]
     Active Substance: VENETOCLAX
     Indication: Acute myeloid leukaemia
     Route: 048
     Dates: start: 20251202
  2. VENCLEXTA [Suspect]
     Active Substance: VENETOCLAX
     Indication: Acute myeloid leukaemia
     Dosage: TAKING FOUR 100 MG VENCLEXTA ONCE DAILY, LAST ADMIN DATE- FEB 2025
     Route: 048
     Dates: start: 202502, end: 202502
  3. VENCLEXTA [Suspect]
     Active Substance: VENETOCLAX
     Indication: Acute myeloid leukaemia
     Dosage: MISSED DOSE
     Route: 048
     Dates: start: 20250208, end: 20251127

REACTIONS (12)
  - Red blood cell count decreased [Unknown]
  - Anxiety [Unknown]
  - Platelet count decreased [Unknown]
  - Depression [Unknown]
  - White blood cell count decreased [Unknown]
  - Memory impairment [Unknown]
  - Fall [Unknown]
  - Haemoglobin decreased [Not Recovered/Not Resolved]
  - Diarrhoea [Unknown]
  - Musculoskeletal disorder [Unknown]
  - Skin cancer [Recovering/Resolving]
  - Laboratory test abnormal [Unknown]

NARRATIVE: CASE EVENT DATE: 20250101
